FAERS Safety Report 6730647-9 (Version None)
Quarter: 2010Q2

REPORT INFORMATION
  Report Type: 
  Country: None (occurrence: None)
  Receive Date: 20100518
  Receipt Date: 20100507
  Transmission Date: 20101027
  Serious: Yes (Hospitalization, Other)
  Sender: FDA-Public Use
  Company Number: US-ELI_LILLY_AND_COMPANY-US201005001929

PATIENT
  Sex: Female
  Weight: 86.621 kg

DRUGS (5)
  1. BYETTA [Suspect]
     Indication: TYPE 2 DIABETES MELLITUS
     Dosage: 5 UG, 2/D
     Route: 058
     Dates: start: 20080101
  2. TRIAMTERENE AND HYDROCHLOROTHIAZIDE [Concomitant]
     Indication: POLYURIA
     Dosage: 37.5 MG, DAILY (1/D)
     Route: 048
  3. RAMIPRIL                           /00885601/ [Concomitant]
     Indication: HYPERTENSION
     Dosage: 5 MG, DAILY (1/D)
     Route: 048
  4. LIOTHYRONINE SODIUM [Concomitant]
     Indication: THYROID DISORDER
     Dosage: 50 UG, DAILY (1/D)
     Route: 048
  5. CELEXA [Concomitant]
     Indication: DEPRESSION
     Dosage: 20 MG, DAILY (1/D)
     Route: 048

REACTIONS (12)
  - BLOOD GLUCOSE DECREASED [None]
  - BLOOD GLUCOSE INCREASED [None]
  - CHONDROPATHY [None]
  - FALL [None]
  - INTERVERTEBRAL DISC DISORDER [None]
  - JOINT DISLOCATION [None]
  - JOINT INJURY [None]
  - LOWER LIMB FRACTURE [None]
  - OFF LABEL USE [None]
  - SPINAL COLUMN STENOSIS [None]
  - TREMOR [None]
  - WEIGHT DECREASED [None]
